FAERS Safety Report 12304010 (Version 1)
Quarter: 2016Q2

REPORT INFORMATION
  Report Type: Spontaneous
  Country: US (occurrence: None)
  Receive Date: 20160425
  Receipt Date: 20160425
  Transmission Date: 20160815
  Serious: No
  Sender: FDA-Public Use
  Company Number: None

PATIENT
  Age: 52 Year
  Sex: Female
  Weight: 105.24 kg

DRUGS (14)
  1. POTASSIUM [Concomitant]
     Active Substance: POTASSIUM
  2. VITAMIN B12 [Concomitant]
     Active Substance: CYANOCOBALAMIN
  3. SIMVASTATIN. [Concomitant]
     Active Substance: SIMVASTATIN
  4. NASACORT [Suspect]
     Active Substance: TRIAMCINOLONE ACETONIDE
     Indication: HYPERSENSITIVITY
     Route: 045
     Dates: start: 20160131, end: 20160419
  5. MELOXICAM. [Concomitant]
     Active Substance: MELOXICAM
  6. LISINOPRIL. [Concomitant]
     Active Substance: LISINOPRIL
  7. LEVOCETIRIZINE [Concomitant]
     Active Substance: LEVOCETIRIZINE
  8. VITAMIN D [Concomitant]
     Active Substance: CHOLECALCIFEROL
  9. METFORMIN [Concomitant]
     Active Substance: METFORMIN HYDROCHLORIDE
  10. TAGAMET [Concomitant]
     Active Substance: CIMETIDINE
  11. MINIVELLE [Concomitant]
     Active Substance: ESTRADIOL
  12. SKELAXIN [Concomitant]
     Active Substance: METAXALONE
  13. VICTOZA [Concomitant]
     Active Substance: LIRAGLUTIDE
  14. TRAGENTA [Concomitant]

REACTIONS (1)
  - Epistaxis [None]

NARRATIVE: CASE EVENT DATE: 20160419
